FAERS Safety Report 23844600 (Version 1)
Quarter: 2024Q2

REPORT INFORMATION
  Report Type: Report from Study
  Country: US (occurrence: US)
  Receive Date: 20240511
  Receipt Date: 20240511
  Transmission Date: 20240715
  Serious: Yes (Other)
  Sender: FDA-Public Use
  Company Number: US-ABBVIE-5657496

PATIENT
  Sex: Male

DRUGS (2)
  1. RINVOQ [Suspect]
     Active Substance: UPADACITINIB
     Indication: Colitis ulcerative
     Dosage: LAST ADMIN DATE: JUL 2023
     Route: 048
     Dates: start: 20230718
  2. RINVOQ [Suspect]
     Active Substance: UPADACITINIB
     Indication: Colitis ulcerative
     Route: 048
     Dates: start: 20230731

REACTIONS (5)
  - Cardiac disorder [Recovering/Resolving]
  - Respiratory disorder [Recovered/Resolved]
  - Dyspnoea [Recovering/Resolving]
  - Lung disorder [Unknown]
  - Weight increased [Recovering/Resolving]
